FAERS Safety Report 10388871 (Version 1)
Quarter: 2014Q1

REPORT INFORMATION
  Report Type: Spontaneous
  Country: US (occurrence: None)
  Receive Date: 20140306
  Receipt Date: 20140306
  Transmission Date: 20141002
  Serious: Yes (Other)
  Sender: FDA-Public Use
  Company Number: 163-21880-13102003

PATIENT
  Age: 68 Year
  Sex: Female
  Weight: 113.17 kg

DRUGS (27)
  1. REVLIMID (LENALIDOMIDE) (5 MILLIGRAM, CAPSULES) [Suspect]
     Indication: CHRONIC LYMPHOCYTIC LEUKAEMIA
     Dosage: 5 MG , 1 IN 1 D, PO
     Route: 048
     Dates: start: 20130514
  2. COUMADIN (WARFARIN SODIUM) [Concomitant]
  3. SYNTHROID (LEVOTHYROXINE SODIUM) [Concomitant]
  4. ZYLOPRIM (ALLOPURINOL) [Concomitant]
  5. XANAX (ALPRAZOLAM) [Concomitant]
  6. XANAX (ALPRAZOLAM) [Concomitant]
  7. B COMPLEX (BECOSYM FORTE) [Concomitant]
  8. ZEBETA (BISOPROLOL FUMARATE) [Concomitant]
  9. VITAMIN D3 (COLECALCIFEROL) [Concomitant]
  10. DEXTRAN W/ HYPROMELLOSE (TEARS NATURAL I I) [Concomitant]
  11. LOMOTIL [Concomitant]
  12. CYMBALTA (DULOXETINE HYDROCHLORIDE) [Concomitant]
  13. GAMMAGARD (IMMUNOGLOBULIN HUMAN NORMAL) [Concomitant]
  14. LANTUS SOLOSTAR (INSULIN GLARGINE) [Concomitant]
  15. INSULIN LISPRO [Concomitant]
  16. MAGNESIUM OXIDE [Concomitant]
  17. MULTIPLE VITAMINS [Concomitant]
  18. KLOR-CON M20 (POTASSIUM CHLORIDE) [Concomitant]
  19. MAXZIDE (DYAZIDE) [Concomitant]
  20. AMBIEN (ZOLPIDEM) [Concomitant]
  21. AMOXICILLIN [Concomitant]
  22. BACTRIM [Concomitant]
  23. IVIG (IMMUNOGLOBULIN) [Concomitant]
  24. NEULASTA PEGFILGRASTIM) [Concomitant]
  25. NEUPOGEN (FILGRASTIM) [Concomitant]
  26. OXYCODONE [Concomitant]
  27. ACTIVELLA [Concomitant]

REACTIONS (3)
  - Pancytopenia [None]
  - Diarrhoea [None]
  - Chronic lymphocytic leukaemia [None]
